FAERS Safety Report 19679638 (Version 1)
Quarter: 2021Q3

REPORT INFORMATION
  Report Type: Spontaneous
  Country: ES (occurrence: ES)
  Receive Date: 20210810
  Receipt Date: 20210810
  Transmission Date: 20211014
  Serious: Yes (Other)
  Sender: FDA-Public Use
  Company Number: ES-BAYER-2021-188011

PATIENT
  Age: 79 Year
  Sex: Female

DRUGS (7)
  1. ACTIRA [Suspect]
     Active Substance: MOXIFLOXACIN HYDROCHLORIDE
     Indication: EAR INFECTION
     Dosage: 400 MG, QD
     Route: 048
     Dates: start: 20210722
  2. ATROVENT [Concomitant]
     Active Substance: IPRATROPIUM BROMIDE
  3. FLUTIFORM [Concomitant]
     Active Substance: FLUTICASONE PROPIONATE\FORMOTEROL FUMARATE
  4. LEVOGASTROL [Concomitant]
     Active Substance: LEVOSULPIRIDE
  5. VENTOLIN [Concomitant]
     Active Substance: ALBUTEROL SULFATE
  6. NEXIUM MUPS [ESOMEPRAZOLE MAGNESIUM] [Concomitant]
     Active Substance: ESOMEPRAZOLE MAGNESIUM
  7. FORTIMEL COMPACT [Concomitant]

REACTIONS (1)
  - Dermatitis exfoliative generalised [Unknown]

NARRATIVE: CASE EVENT DATE: 20210723
